FAERS Safety Report 19609939 (Version 6)
Quarter: 2022Q1

REPORT INFORMATION
  Report Type: Spontaneous
  Country: CO (occurrence: CO)
  Receive Date: 20210726
  Receipt Date: 20220320
  Transmission Date: 20220423
  Serious: Yes (Hospitalization, Other)
  Sender: FDA-Public Use
  Company Number: CO-PFIZER INC-2021894514

PATIENT
  Age: 63 Year
  Sex: Female

DRUGS (2)
  1. ENBREL [Suspect]
     Active Substance: ETANERCEPT
     Indication: Rheumatoid arthritis
     Dosage: 50 MG, WEEKLY
     Route: 058
     Dates: start: 2017, end: 20210914
  2. ENBREL [Suspect]
     Active Substance: ETANERCEPT
     Dosage: 50 MG, UNSPECIFIED FREQUENCY
     Route: 058
     Dates: end: 202112

REACTIONS (7)
  - Cardiac disorder [Unknown]
  - Product dispensing error [Unknown]
  - Pain in extremity [Recovering/Resolving]
  - Inflammation [Recovering/Resolving]
  - Pain [Not Recovered/Not Resolved]
  - Influenza [Unknown]
  - Pneumonia [Unknown]

NARRATIVE: CASE EVENT DATE: 20211201
